FAERS Safety Report 14138667 (Version 1)
Quarter: 2017Q4

REPORT INFORMATION
  Report Type: Spontaneous
  Country: BG (occurrence: BG)
  Receive Date: 20171027
  Receipt Date: 20171027
  Transmission Date: 20180321
  Serious: Yes (Other)
  Sender: FDA-Public Use
  Company Number: BG-BAYER-2017-188899

PATIENT
  Sex: Male

DRUGS (1)
  1. ASPIRIN ULTRA 500 MG [Suspect]
     Active Substance: ASPIRIN
     Indication: OROPHARYNGEAL PAIN
     Dosage: 500 MG, UNK

REACTIONS (2)
  - Wrong technique in product usage process [None]
  - Chemical burn of gastrointestinal tract [Recovering/Resolving]

NARRATIVE: CASE EVENT DATE: 20171002
